FAERS Safety Report 4531335-X (Version None)
Quarter: 2004Q4

REPORT INFORMATION
  Report Type: 
  Country: None (occurrence: None)
  Receive Date: 20041206
  Receipt Date: 20040922
  Transmission Date: 20050328
  Serious: No
  Sender: FDA-Public Use
  Company Number: USA040978196

PATIENT
  Age: 45 Year
  Sex: Female
  Weight: 50 kg

DRUGS (8)
  1. CYMBALTA [Suspect]
     Indication: DEPRESSION
     Dosage: 60 MG DAY
     Dates: start: 20040901
  2. PERCOCET [Concomitant]
  3. SONATA [Concomitant]
  4. VALIUM [Concomitant]
  5. TYLENOL PM [Concomitant]
  6. ALLEGRA [Concomitant]
  7. ATARAX (ALPRAZOLAM DUM) [Concomitant]
  8. SINGULAIR (MONTELUKAST) [Concomitant]

REACTIONS (4)
  - DIZZINESS [None]
  - FATIGUE [None]
  - INSOMNIA [None]
  - SOMNOLENCE [None]
